FAERS Safety Report 23879545 (Version 1)
Quarter: 2024Q2

REPORT INFORMATION
  Report Type: Spontaneous
  Country: US (occurrence: None)
  Receive Date: 20240520
  Receipt Date: 20240520
  Transmission Date: 20240716
  Serious: No
  Sender: FDA-Public Use
  Company Number: None

PATIENT
  Sex: Female
  Weight: 45.9 kg

DRUGS (2)
  1. BACLOFEN [Suspect]
     Active Substance: BACLOFEN
     Indication: Neck pain
  2. BACLOFEN [Suspect]
     Active Substance: BACLOFEN
     Indication: Arthralgia

REACTIONS (3)
  - Hallucination, visual [None]
  - Ophthalmic migraine [None]
  - Charles Bonnet syndrome [None]
